FAERS Safety Report 21850310 (Version 2)
Quarter: 2023Q1

REPORT INFORMATION
  Report Type: Report from Study
  Country: US (occurrence: US)
  Receive Date: 20230111
  Receipt Date: 20230113
  Transmission Date: 20230418
  Serious: No
  Sender: FDA-Public Use
  Company Number: US-002147023-NVSC2023US006050

PATIENT
  Sex: Female

DRUGS (1)
  1. ILARIS [Suspect]
     Active Substance: CANAKINUMAB
     Indication: Muckle-Wells syndrome
     Dosage: 150 MG EVERY 6 WEEKS
     Route: 058
     Dates: start: 2018

REACTIONS (2)
  - Gastrointestinal disorder [Unknown]
  - Inappropriate schedule of product administration [Unknown]
